FAERS Safety Report 20690481 (Version 1)
Quarter: 2022Q2

REPORT INFORMATION
  Report Type: Report from Study
  Country: US (occurrence: US)
  Receive Date: 20220408
  Receipt Date: 20220408
  Transmission Date: 20220721
  Serious: No
  Sender: FDA-Public Use
  Company Number: US-NOVARTISTESTPH-NVSC2022US079588

PATIENT
  Age: 72 Year
  Sex: Female

DRUGS (1)
  1. ENTRESTO [Suspect]
     Active Substance: SACUBITRIL\VALSARTAN
     Indication: Product used for unknown indication
     Dosage: 1 DOSAGE FORM, BID
     Route: 048
     Dates: start: 20201127

REACTIONS (4)
  - Escherichia infection [Recovering/Resolving]
  - Muscle spasms [Recovering/Resolving]
  - Diarrhoea [Recovering/Resolving]
  - Cough [Unknown]

NARRATIVE: CASE EVENT DATE: 20220310
